FAERS Safety Report 8945352 (Version 1)
Quarter: 2012Q4

REPORT INFORMATION
  Report Type: 
  Country: US (occurrence: US)
  Receive Date: 20121204
  Receipt Date: 20121204
  Transmission Date: 20130627
  Serious: No
  Sender: FDA-Public Use
  Company Number: US-AMGEN-USASP2012074450

PATIENT
  Age: 65 Year
  Sex: Female
  Weight: 79.37 kg

DRUGS (11)
  1. ENBREL [Suspect]
     Indication: PRODUCT USED FOR UNKNOWN INDICATION
     Dosage: 50 mg, qwk
     Route: 058
  2. METHOTREXATE [Concomitant]
     Dosage: 2.5 mg, UNK
  3. PREDNISONE [Concomitant]
     Dosage: 1 mg, UNK
  4. DIOVAN [Concomitant]
     Dosage: 160 mg, UNK
  5. FOLIC ACID [Concomitant]
     Dosage: 1 mg, UNK
  6. NEXIUM                             /01479302/ [Concomitant]
     Dosage: 40 mg, UNK
  7. MULTIVITAMINS, PLAIN [Concomitant]
     Dosage: UNK
  8. CALCIUM +D                         /07511201/ [Concomitant]
     Dosage: UNK
  9. FLAXSEED OIL [Concomitant]
     Dosage: UNK
  10. OMEGA 3                            /01334101/ [Concomitant]
     Dosage: 1000 mg, UNK
  11. B COMPLEX                          /00212701/ [Concomitant]
     Dosage: UNK

REACTIONS (2)
  - Hepatic enzyme increased [Unknown]
  - Injection site pain [Unknown]
